FAERS Safety Report 7350610-7 (Version None)
Quarter: 2011Q1

REPORT INFORMATION
  Report Type: 
  Country: None (occurrence: None)
  Receive Date: 20110222
  Receipt Date: 20101116
  Transmission Date: 20110831
  Serious: No
  Sender: FDA-Public Use
  Company Number: 022170

PATIENT
  Sex: Male

DRUGS (1)
  1. LACOSAMIDE [Suspect]
     Dosage: (100 MG BID), (150 MG BID)

REACTIONS (2)
  - DRUG PRESCRIBING ERROR [None]
  - COORDINATION ABNORMAL [None]
